FAERS Safety Report 7372594-8 (Version None)
Quarter: 2011Q1

REPORT INFORMATION
  Report Type: 
  Country: None (occurrence: None)
  Receive Date: 20110315
  Receipt Date: 20110228
  Transmission Date: 20110831
  Serious: Yes (Other)
  Sender: FDA-Public Use
  Company Number: JP-2011-10415

PATIENT
  Age: 63 Year
  Sex: Female

DRUGS (1)
  1. PLETAL [Suspect]
     Indication: ATRIOVENTRICULAR DISSOCIATION
     Dosage: ORAL ; ORAL
     Route: 048

REACTIONS (3)
  - HYPOTENSION [None]
  - ANAEMIA [None]
  - POST PROCEDURAL HAEMATOMA [None]
